FAERS Safety Report 17744939 (Version 1)
Quarter: 2020Q2

REPORT INFORMATION
  Report Type: Spontaneous
  Country: US (occurrence: US)
  Receive Date: 20200504
  Receipt Date: 20200504
  Transmission Date: 20200714
  Serious: Yes (Other)
  Sender: FDA-Public Use
  Company Number: US-ANIPHARMA-2020-US-008277

PATIENT
  Age: 69 Year
  Sex: Female

DRUGS (11)
  1. AMIODARONE [Suspect]
     Active Substance: AMIODARONE
     Indication: ATRIAL FIBRILLATION
  2. CLONIDINE. [Concomitant]
     Active Substance: CLONIDINE
  3. FEXOFENADINE [Concomitant]
     Active Substance: FEXOFENADINE HYDROCHLORIDE
  4. ATORVASTATIN [Concomitant]
     Active Substance: ATORVASTATIN
  5. CHOLECALCIFEROL [Concomitant]
     Active Substance: CHOLECALCIFEROL
  6. NIFEDIPINE. [Concomitant]
     Active Substance: NIFEDIPINE
  7. APIXABAN [Concomitant]
     Active Substance: APIXABAN
  8. LABETALOL [Concomitant]
     Active Substance: LABETALOL\LABETALOL HYDROCHLORIDE
  9. CHLORTHALIDONE (NON-SPECIFIC) [Suspect]
     Active Substance: CHLORTHALIDONE
     Indication: HYPERTENSION
  10. LATANOPROST EYE DROPS [Concomitant]
     Active Substance: LATANOPROST
  11. GLARGINE INSULIN [Concomitant]
     Active Substance: INSULIN GLARGINE

REACTIONS (3)
  - Systemic lupus erythematosus [Unknown]
  - Rash [Recovered/Resolved]
  - Tubulointerstitial nephritis [Unknown]
